FAERS Safety Report 9562438 (Version 3)
Quarter: 2014Q1

REPORT INFORMATION
  Report Type: Spontaneous
  Country: US (occurrence: US)
  Receive Date: 20130927
  Receipt Date: 20140321
  Transmission Date: 20141002
  Serious: Yes (Hospitalization)
  Sender: FDA-Public Use
  Company Number: US-GLAXOSMITHKLINE-A1042979A

PATIENT
  Age: 66 Year
  Sex: Male

DRUGS (1)
  1. AVANDIA [Suspect]
     Indication: DIABETES MELLITUS
     Dosage: 4MG PER DAY
     Route: 048
     Dates: start: 200510, end: 201001

REACTIONS (9)
  - Cerebrovascular accident [Not Recovered/Not Resolved]
  - Osteomyelitis [Unknown]
  - Diabetic retinopathy [Unknown]
  - Blindness [Unknown]
  - Pericardial effusion [Unknown]
  - Amputation [Unknown]
  - Renal failure acute [Unknown]
  - Cardiac disorder [Unknown]
  - Macular oedema [Unknown]
